FAERS Safety Report 6835593-8 (Version None)
Quarter: 2010Q3

REPORT INFORMATION
  Report Type: 
  Country: None (occurrence: None)
  Receive Date: 20100713
  Receipt Date: 20100701
  Transmission Date: 20110219
  Serious: Yes (Hospitalization)
  Sender: FDA-Public Use
  Company Number: US-ELI_LILLY_AND_COMPANY-US201007001200

PATIENT
  Sex: Female

DRUGS (11)
  1. FORTEO [Suspect]
     Indication: OSTEOPOROSIS
     Dosage: 20 UG, DAILY (1/D)
  2. OSCAL [Concomitant]
  3. VITAMIN D [Concomitant]
  4. METOPROLOL SUCCINATE [Concomitant]
  5. LIPITOR [Concomitant]
  6. ARICEPT [Concomitant]
  7. RAMIPRIL [Concomitant]
  8. GABAPENTIN [Concomitant]
  9. ASPIRIN [Concomitant]
  10. SENNA [Concomitant]
  11. DIURETICS [Concomitant]

REACTIONS (4)
  - BLOOD ELECTROLYTES ABNORMAL [None]
  - BLOOD SODIUM DECREASED [None]
  - CONSTIPATION [None]
  - DISORIENTATION [None]
